FAERS Safety Report 17306389 (Version 1)
Quarter: 2020Q1

REPORT INFORMATION
  Report Type: Spontaneous
  Country: FR (occurrence: FR)
  Receive Date: 20200123
  Receipt Date: 20200123
  Transmission Date: 20200409
  Serious: Yes (Other)
  Sender: FDA-Public Use
  Company Number: FR-ROCHE-2522694

PATIENT
  Age: 25 Year
  Sex: Male

DRUGS (2)
  1. DIAZEPAM. [Suspect]
     Active Substance: DIAZEPAM
     Indication: AGITATION
     Route: 048
     Dates: start: 20191014, end: 20191019
  2. LOXAPAC [LOXAPINE] [Suspect]
     Active Substance: LOXAPINE
     Indication: AGITATION
     Route: 048
     Dates: start: 20191014, end: 20191019

REACTIONS (2)
  - Micturition disorder [Recovered/Resolved]
  - Constipation [Recovered/Resolved]

NARRATIVE: CASE EVENT DATE: 20191018
